FAERS Safety Report 17105555 (Version 1)
Quarter: 2019Q4

REPORT INFORMATION
  Report Type: Spontaneous
  Country: GB (occurrence: GB)
  Receive Date: 20191203
  Receipt Date: 20191203
  Transmission Date: 20200122
  Serious: Yes (Other)
  Sender: FDA-Public Use
  Company Number: GB-TEVA-2019-GB-1144332

PATIENT
  Age: 28 Year
  Sex: Female
  Weight: 70 kg

DRUGS (9)
  1. SOMINEX [Suspect]
     Active Substance: DIPHENHYDRAMINE HYDROCHLORIDE
     Indication: INSOMNIA
     Dosage: 1 DOSAGE FORMS DAILY; AT NIGHT
     Route: 048
     Dates: start: 20191025, end: 20191027
  2. ACICLOVIR [Concomitant]
     Active Substance: ACYCLOVIR
  3. WITHANIA SOMNIFERA [Concomitant]
     Active Substance: HERBALS
  4. PARACETAMOL COATED 90% [Concomitant]
  5. SERTRALINE HYDROCHLORIDE. [Concomitant]
     Active Substance: SERTRALINE HYDROCHLORIDE
  6. IBUPROFEN SODIUM. [Concomitant]
     Active Substance: IBUPROFEN SODIUM
  7. CERELLE [Concomitant]
     Active Substance: DESOGESTREL
  8. ACETYLSALICYLIC ACID [Concomitant]
     Active Substance: ASPIRIN
  9. DAMIANA [Concomitant]

REACTIONS (1)
  - Restless legs syndrome [Unknown]

NARRATIVE: CASE EVENT DATE: 20191025
